FAERS Safety Report 4970172-9 (Version None)
Quarter: 2006Q2

REPORT INFORMATION
  Report Type: 
  Country: None (occurrence: None)
  Receive Date: 20060412
  Receipt Date: 20041215
  Transmission Date: 20061013
  Serious: Yes (Other)
  Sender: FDA-Public Use
  Company Number: PHBS2004DK17002

PATIENT
  Age: 72 Year
  Sex: Female

DRUGS (5)
  1. CHEMOTHERAPEUTICS,OTHER [Concomitant]
     Route: 065
  2. AREDIA [Suspect]
     Indication: MULTIPLE MYELOMA
     Dosage: 90 MG EVERY 6 WEEKS
     Route: 042
     Dates: start: 20010923
  3. ALKERAN [Concomitant]
     Dosage: UNK, UNK
     Dates: start: 20010501, end: 20020701
  4. PREDNISONE [Concomitant]
     Dosage: UNK, UNK
     Dates: start: 20010501, end: 20020701
  5. THALIDOMID [Concomitant]
     Dosage: UNK, UNK
     Dates: start: 20021001, end: 20030701

REACTIONS (8)
  - ACTINOMYCOSIS [None]
  - BONE DEBRIDEMENT [None]
  - BONE DISORDER [None]
  - FISTULA [None]
  - FISTULA REPAIR [None]
  - OSTEONECROSIS [None]
  - PAIN IN JAW [None]
  - TOOTH EXTRACTION [None]
